FAERS Safety Report 14969910 (Version 1)
Quarter: 2018Q2

REPORT INFORMATION
  Report Type: Spontaneous
  Country: US (occurrence: US)
  Receive Date: 20180604
  Receipt Date: 20180604
  Transmission Date: 20180711
  Serious: Yes (Other)
  Sender: FDA-Public Use
  Company Number: US-TEVA-2018-US-899502

PATIENT
  Age: 34 Year
  Sex: Female

DRUGS (1)
  1. SPRINTEC [Suspect]
     Active Substance: ETHINYL ESTRADIOL\NORGESTIMATE
     Indication: POLYCYSTIC OVARIES
     Dosage: DOSE STRENGTH:  0.250 MG/0.035 MG
     Route: 065
     Dates: start: 20180516

REACTIONS (4)
  - Swelling face [Unknown]
  - Anaphylactic reaction [Unknown]
  - Mouth swelling [Unknown]
  - Eye swelling [Unknown]

NARRATIVE: CASE EVENT DATE: 20180525
